FAERS Safety Report 18542624 (Version 2)
Quarter: 2021Q1

REPORT INFORMATION
  Report Type: Spontaneous
  Country: US (occurrence: US)
  Receive Date: 20201124
  Receipt Date: 20210101
  Transmission Date: 20210419
  Serious: No
  Sender: FDA-Public Use
  Company Number: US-TAKEDA-2020TUS051660

PATIENT
  Age: 40 Year
  Sex: Female
  Weight: 150 kg

DRUGS (5)
  1. TRINTELLIX [Suspect]
     Active Substance: VORTIOXETINE HYDROBROMIDE
     Indication: ANXIETY
     Dosage: 10 MILLIGRAM
     Route: 065
  2. BUPROPION. [Concomitant]
     Active Substance: BUPROPION
     Indication: DEPRESSED MOOD
     Dosage: 300 MILLIGRAM, QD
     Route: 065
     Dates: start: 2018
  3. TRINTELLIX [Suspect]
     Active Substance: VORTIOXETINE HYDROBROMIDE
     Indication: DEPRESSION
     Dosage: 5 MILLIGRAM
     Route: 048
  4. TRINTELLIX [Suspect]
     Active Substance: VORTIOXETINE HYDROBROMIDE
     Dosage: 10 MILLIGRAM, QD
     Route: 048
     Dates: start: 201802, end: 202010
  5. CONCRETE [Concomitant]
     Indication: ATTENTION DEFICIT HYPERACTIVITY DISORDER
     Dosage: 54 MILLIGRAM, QD
     Route: 065
     Dates: start: 2018

REACTIONS (3)
  - Tremor [Recovered/Resolved]
  - Night sweats [Recovered/Resolved]
  - Headache [Recovered/Resolved]

NARRATIVE: CASE EVENT DATE: 202006
